FAERS Safety Report 4511304-6 (Version None)
Quarter: 2004Q4

REPORT INFORMATION
  Report Type: 
  Country: None (occurrence: None)
  Receive Date: 20041129
  Receipt Date: 20040825
  Transmission Date: 20050328
  Serious: Yes (Hospitalization)
  Sender: FDA-Public Use
  Company Number: IT-BRISTOL-MYERS SQUIBB COMPANY-12683546

PATIENT
  Age: 55 Year
  Sex: Male

DRUGS (9)
  1. ATAZANAVIR [Suspect]
     Indication: HIV INFECTION
     Route: 048
     Dates: start: 20040525, end: 20040808
  2. NORVIR [Concomitant]
     Indication: HIV INFECTION
     Dates: start: 20040525, end: 20040808
  3. TRIZIVIR [Concomitant]
     Indication: HIV INFECTION
     Dosage: INTERRUPTED ON 09-AUG-2004
     Dates: start: 20040525
  4. VIREAD [Concomitant]
     Indication: HIV INFECTION
     Dosage: INTERRUPTED ON 09-AUG-2004
     Dates: start: 20040430
  5. VIDEX [Concomitant]
     Indication: HIV INFECTION
     Dosage: INTERRUPTED ON 09-AUG-2004
     Dates: start: 20040430
  6. ATENOLOL [Concomitant]
  7. NITRODERM [Concomitant]
  8. ASPIRIN [Concomitant]
  9. CARNITINE [Concomitant]

REACTIONS (1)
  - ACUTE MYOCARDIAL INFARCTION [None]
